FAERS Safety Report 4796395-X (Version None)
Quarter: 2005Q4

REPORT INFORMATION
  Report Type: 
  Country: None (occurrence: None)
  Receive Date: 20051007
  Receipt Date: 20050926
  Transmission Date: 20060501
  Serious: Yes (Other)
  Sender: FDA-Public Use
  Company Number: 2005133814

PATIENT
  Age: 51 Year
  Sex: Male

DRUGS (3)
  1. FRESHBURST LISGTERINE ANTISEPTIC (MENTHOL, METHYL SALICYLATE, EUCALYPT [Suspect]
     Dosage: 40 ML SAMPLE
     Dates: start: 20040318, end: 20041001
  2. LISTERINE (MENTHOL, METHYL SALICYLATE, EUCALYPTOL, THYMOL) [Suspect]
     Indication: DENTAL DISORDER PROPHYLAXIS
  3. LISTERINE (MENTHOL, METHYL SALICYLATE, EUCALYPTOL, THYMOL) [Suspect]

REACTIONS (2)
  - DRUG DEPENDENCE [None]
  - FEELING DRUNK [None]
